FAERS Safety Report 5322268-X (Version None)
Quarter: 2007Q2

REPORT INFORMATION
  Report Type: 
  Country: None (occurrence: None)
  Receive Date: 20070511
  Receipt Date: 20070509
  Transmission Date: 20071010
  Serious: Yes (Congenital Anomaly, Other)
  Sender: FDA-Public Use
  Company Number: A0612838A

PATIENT
  Sex: Male
  Weight: 3.3 kg

DRUGS (3)
  1. LAMICTAL [Suspect]
     Indication: EPILEPSY
     Dosage: 300MG UNKNOWN
  2. DILANTIN [Concomitant]
     Indication: EPILEPSY
     Dosage: 200MG UNKNOWN
  3. TOPAMAX [Concomitant]
     Indication: EPILEPSY
     Dates: end: 20060201

REACTIONS (3)
  - CONGENITAL DERMAL SINUS [None]
  - DRUG EXPOSURE DURING PREGNANCY [None]
  - SPINA BIFIDA OCCULTA [None]
